FAERS Safety Report 18884703 (Version 4)
Quarter: 2021Q2

REPORT INFORMATION
  Report Type: Other
  Country: US (occurrence: US)
  Receive Date: 20210211
  Receipt Date: 20210615
  Transmission Date: 20210717
  Serious: Yes (Hospitalization, Other)
  Sender: FDA-Public Use
  Company Number: US-ROCHE-2766289

PATIENT
  Age: 76 Year
  Sex: Female

DRUGS (8)
  1. ESBRIET [Suspect]
     Active Substance: PIRFENIDONE
     Indication: PULMONARY FIBROSIS
     Route: 048
  2. ESBRIET [Suspect]
     Active Substance: PIRFENIDONE
     Indication: IDIOPATHIC PULMONARY FIBROSIS
     Route: 048
  3. ESBRIET [Suspect]
     Active Substance: PIRFENIDONE
     Indication: INTERSTITIAL LUNG DISEASE
  4. BABY ASPIRIN [Concomitant]
     Active Substance: ASPIRIN
     Route: 048
  5. ESBRIET [Suspect]
     Active Substance: PIRFENIDONE
     Indication: PULMONARY FIBROSIS
  6. FISH OIL [Concomitant]
     Active Substance: FISH OIL
     Route: 048
  7. BROVANA [Concomitant]
     Active Substance: ARFORMOTEROL TARTRATE
     Indication: CHRONIC OBSTRUCTIVE PULMONARY DISEASE
     Dosage: 2 ML (15 MCG TOTAL) BY NEBULIZATION 2 TIMES A DAY
     Dates: start: 20210309
  8. YUPELRI [Concomitant]
     Active Substance: REVEFENACIN
     Indication: CHRONIC OBSTRUCTIVE PULMONARY DISEASE
     Dosage: 175 MCG BY NEBULIZATION DAILY
     Dates: start: 20210309

REACTIONS (14)
  - Drug ineffective [Unknown]
  - Dizziness [Not Recovered/Not Resolved]
  - Dyspnoea [Not Recovered/Not Resolved]
  - Cough [Unknown]
  - Pneumonia [Recovered/Resolved]
  - Ulcer [Recovered/Resolved]
  - Pneumonia [Unknown]
  - Anxiety [Not Recovered/Not Resolved]
  - Night sweats [Unknown]
  - Biliary colic [Recovered/Resolved]
  - Drug intolerance [Unknown]
  - Dyspnoea [Unknown]
  - Chills [Unknown]
  - Body temperature fluctuation [Unknown]

NARRATIVE: CASE EVENT DATE: 2020
